FAERS Safety Report 21955251 (Version 1)
Quarter: 2023Q1

REPORT INFORMATION
  Report Type: Spontaneous
  Country: US (occurrence: US)
  Receive Date: 20230206
  Receipt Date: 20230206
  Transmission Date: 20230417
  Serious: No
  Sender: FDA-Public Use
  Company Number: US-CADILA HEALTHCARE LIMITED-US-ZYDUS-082312

PATIENT

DRUGS (1)
  1. BOSENTAN [Suspect]
     Active Substance: BOSENTAN
     Indication: Pulmonary arterial hypertension
     Dosage: 125 MILLIGRAM, BID
     Route: 048
     Dates: start: 20210712

REACTIONS (5)
  - Insomnia [Unknown]
  - Fatigue [Unknown]
  - Chest discomfort [Unknown]
  - Muscle tightness [Unknown]
  - Dysaesthesia [Unknown]

NARRATIVE: CASE EVENT DATE: 20220101
